FAERS Safety Report 17043437 (Version 1)
Quarter: 2019Q4

REPORT INFORMATION
  Report Type: Spontaneous
  Country: US (occurrence: US)
  Receive Date: 20191118
  Receipt Date: 20191118
  Transmission Date: 20200122
  Serious: No
  Sender: FDA-Public Use
  Company Number: US-THERAPEUTICSMD-2019TMD03529

PATIENT
  Age: 51 Year
  Sex: Female
  Weight: 88.44 kg

DRUGS (13)
  1. LEVOTHYROXINE. [Concomitant]
     Active Substance: LEVOTHYROXINE
  2. VITAMIN D [Concomitant]
     Active Substance: VITAMIN D NOS
  3. VITAMIN C [Concomitant]
     Active Substance: ASCORBIC ACID
  4. NATURE-THROID [Concomitant]
     Active Substance: THYROID, PORCINE
  5. BIJUVA [Suspect]
     Active Substance: ESTRADIOL\PROGESTERONE
     Indication: HOT FLUSH
     Dosage: 1 CAPSULES, 1X/DAY AT NIGHT
     Route: 048
     Dates: start: 20190919, end: 20191010
  6. BIJUVA [Suspect]
     Active Substance: ESTRADIOL\PROGESTERONE
     Indication: NIGHT SWEATS
  7. C0Q10 [Concomitant]
  8. UNSPECIFIED VITAMINS [Concomitant]
     Active Substance: VITAMINS
  9. CARDIO OMEGA [Concomitant]
  10. CBD OIL [Concomitant]
     Active Substance: CANNABIDIOL\HERBALS
  11. LOSARTAN. [Concomitant]
     Active Substance: LOSARTAN
  12. BIJUVA [Suspect]
     Active Substance: ESTRADIOL\PROGESTERONE
     Indication: MENOPAUSE
  13. UNSPECIFIED THYROID SUPPLEMENT [Concomitant]

REACTIONS (1)
  - Drug ineffective [Recovered/Resolved]

NARRATIVE: CASE EVENT DATE: 20190919
